FAERS Safety Report 8592188-6 (Version None)
Quarter: 2012Q3

REPORT INFORMATION
  Report Type: 
  Country: None (occurrence: None)
  Receive Date: 20120814
  Receipt Date: 20120731
  Transmission Date: 20120928
  Serious: No
  Sender: FDA-Public Use
  Company Number: US-ASTRAZENECA-2012SE54226

PATIENT
  Age: 64 Year
  Sex: Female
  Weight: 77.1 kg

DRUGS (7)
  1. INJECTED INSULIN [Concomitant]
     Indication: DIABETES MELLITUS
  2. WATER PILL [Concomitant]
  3. JANUMET [Concomitant]
     Indication: DIABETES MELLITUS
  4. VITAMIN D [Concomitant]
  5. SYMBICORT [Suspect]
     Indication: CHRONIC OBSTRUCTIVE PULMONARY DISEASE
     Dosage: UNKNOWN FREQUENCY
     Route: 055
     Dates: start: 20110401
  6. SINGULAIR [Concomitant]
  7. LIPITOR [Concomitant]

REACTIONS (4)
  - EXCORIATION [None]
  - SKIN ATROPHY [None]
  - CONTUSION [None]
  - OFF LABEL USE [None]
